FAERS Safety Report 10417075 (Version 2)
Quarter: 2014Q3

REPORT INFORMATION
  Report Type: Spontaneous
  Country: FR (occurrence: FR)
  Receive Date: 20140828
  Receipt Date: 20140903
  Transmission Date: 20150326
  Serious: Yes (Hospitalization)
  Sender: FDA-Public Use
  Company Number: FR-PFIZER INC-2014238722

PATIENT
  Age: 67 Year
  Sex: Female

DRUGS (7)
  1. ISOPTIN [Concomitant]
     Active Substance: VERAPAMIL HYDROCHLORIDE
     Dosage: 120 MG, UNK
  2. ATROVENT [Concomitant]
     Active Substance: IPRATROPIUM BROMIDE
     Dosage: UNK
  3. EUPANTOL [Suspect]
     Active Substance: PANTOPRAZOLE SODIUM
     Indication: ABDOMINAL PAIN UPPER
     Dosage: 40 MG, DAILY
     Route: 042
     Dates: start: 20140520, end: 20140520
  4. COUMADINE [Concomitant]
     Active Substance: WARFARIN SODIUM
     Dosage: UNK
  5. LEXOMIL [Concomitant]
     Active Substance: BROMAZEPAM
     Dosage: UNK
  6. CELESTENE [Concomitant]
     Active Substance: BETAMETHASONE
     Dosage: UNK
  7. INEXIUM [Concomitant]
     Active Substance: ESOMEPRAZOLE
     Dosage: UNK
     Dates: end: 20140520

REACTIONS (4)
  - Hypersensitivity [Recovered/Resolved]
  - Bronchospasm [Recovered/Resolved]
  - Asthma [Recovered/Resolved]
  - Intentional product misuse [Recovered/Resolved]

NARRATIVE: CASE EVENT DATE: 20140520
